FAERS Safety Report 9661237 (Version 1)
Quarter: 2013Q4

REPORT INFORMATION
  Report Type: Spontaneous
  Country: US (occurrence: None)
  Receive Date: 20131030
  Receipt Date: 20131030
  Transmission Date: 20140711
  Serious: Yes (Hospitalization)
  Sender: FDA-Public Use
  Company Number: 2013037008

PATIENT
  Age: 90 Year
  Sex: Female

DRUGS (1)
  1. FRAGMIN (DALTEPARIN SODIUM) SOLUTION FOR INJECTION [Suspect]
     Indication: PULMONARY EMBOLISM
     Route: 058
     Dates: start: 2012, end: 20130112

REACTIONS (1)
  - Epistaxis [None]
